FAERS Safety Report 10084134 (Version 1)
Quarter: 2014Q2

REPORT INFORMATION
  Report Type: Spontaneous
  Country: TR (occurrence: TR)
  Receive Date: 20140417
  Receipt Date: 20140417
  Transmission Date: 20141212
  Serious: Yes (Death, Congenital Anomaly)
  Sender: FDA-Public Use
  Company Number: TR-NOVOPROD-406599

PATIENT
  Sex: Male
  Weight: 2.89 kg

DRUGS (5)
  1. NOVORAPID FLEXPEN [Suspect]
     Indication: GESTATIONAL DIABETES
     Dosage: 21 U, QD
     Route: 064
     Dates: start: 20140220, end: 20140331
  2. HUMULIN N [Concomitant]
     Indication: GESTATIONAL DIABETES
     Dosage: 5 U, QD
     Route: 064
     Dates: start: 201403, end: 20140331
  3. DECAVIT                            /06014801/ [Concomitant]
     Dosage: 1X1
     Route: 064
     Dates: start: 201310, end: 20140331
  4. FERROSANOL [Concomitant]
     Dosage: 1X1
     Route: 064
     Dates: start: 201310, end: 20140331
  5. EUTHYROX [Concomitant]
     Indication: THYROID DISORDER
     Dosage: 1X1
     Route: 064
     Dates: start: 2010

REACTIONS (3)
  - Congenital heart valve disorder [Fatal]
  - Coronary artery occlusion [Fatal]
  - Foetal exposure during pregnancy [Unknown]
